FAERS Safety Report 15011109 (Version 1)
Quarter: 2018Q2

REPORT INFORMATION
  Report Type: Spontaneous
  Country: US (occurrence: US)
  Receive Date: 20180614
  Receipt Date: 20180614
  Transmission Date: 20180711
  Serious: Yes (Hospitalization)
  Sender: FDA-Public Use
  Company Number: US-TEVA-2018-US-905526

PATIENT
  Sex: Female
  Weight: 2.65 kg

DRUGS (4)
  1. AMIODARONE [Suspect]
     Active Substance: AMIODARONE
     Indication: JUNCTIONAL ECTOPIC TACHYCARDIA
     Dosage: FOLLOWED BY 300MG DOSE
     Route: 064
  2. DIGOXIN. [Concomitant]
     Active Substance: DIGOXIN
     Indication: JUNCTIONAL ECTOPIC TACHYCARDIA
     Route: 064
  3. SOTALOL. [Suspect]
     Active Substance: SOTALOL
     Indication: JUNCTIONAL ECTOPIC TACHYCARDIA
     Dosage: INITIAL DOSE NOT STATED; MAXIMUM DOSE WAS 480MG/DAY
     Route: 064
  4. AMIODARONE [Suspect]
     Active Substance: AMIODARONE
     Indication: JUNCTIONAL ECTOPIC TACHYCARDIA
     Route: 064

REACTIONS (2)
  - Foetal exposure during pregnancy [Unknown]
  - Bundle branch block left [Recovered/Resolved]
